FAERS Safety Report 7784472-0 (Version None)
Quarter: 2011Q3

REPORT INFORMATION
  Report Type: 
  Country: None (occurrence: None)
  Receive Date: 20110928
  Receipt Date: 20110922
  Transmission Date: 20111222
  Serious: Yes (Other)
  Sender: FDA-Public Use
  Company Number: PHEH2011US04895

PATIENT
  Sex: Female

DRUGS (12)
  1. METFORMIN HCL [Concomitant]
     Dosage: 500 MG, UNK
  2. POTASSIUM CITRATE [Concomitant]
     Dosage: 540 MG, UNK
  3. LOSARTAN POTASSIUM [Concomitant]
     Dosage: 100 MG, UNK
  4. HYDROCORTISONE [Concomitant]
     Dosage: 10 MG, UNK
  5. HYDROCORTISONE [Concomitant]
     Dosage: 20 MG, UNK
  6. SYNTHROID [Concomitant]
     Dosage: 0.088 MG, UNK
  7. BROMOCRIPTINE MESYLATE [Suspect]
  8. SYNTHROID [Concomitant]
     Dosage: 0.075 MG, UNK
  9. PEGVISOMANT [Suspect]
  10. JANUMET [Concomitant]
     Dosage: 50-100 MG, UNK
  11. SANDOSTATIN [Suspect]
     Indication: ACROMEGALY
     Dosage: UNK UKN, TID
     Route: 058
  12. GLIPIZIDE [Concomitant]
     Dosage: 5 MG, UNK

REACTIONS (2)
  - HEPATITIS ACUTE [None]
  - DRUG INEFFECTIVE [None]
